FAERS Safety Report 9777621 (Version 2)
Quarter: 2014Q1

REPORT INFORMATION
  Report Type: Report from Study
  Country: DE (occurrence: DE)
  Receive Date: 20131222
  Receipt Date: 20140131
  Transmission Date: 20141002
  Serious: Yes (Death, Other)
  Sender: FDA-Public Use
  Company Number: DE-ROCHE-1320891

PATIENT
  Age: 71 Year
  Sex: Female
  Weight: 52 kg

DRUGS (3)
  1. VEMURAFENIB [Suspect]
     Indication: MALIGNANT MELANOMA
     Route: 065
     Dates: end: 201010
  2. VEMURAFENIB [Suspect]
     Route: 065
     Dates: start: 201202, end: 201305
  3. VEMURAFENIB [Suspect]
     Route: 065
     Dates: start: 20120612, end: 20130605

REACTIONS (6)
  - Malignant neoplasm progression [Fatal]
  - Weight decreased [Unknown]
  - Subacute cutaneous lupus erythematosus [Recovered/Resolved]
  - Nausea [Recovered/Resolved]
  - Diarrhoea [Recovered/Resolved]
  - Lymphopenia [Unknown]
